FAERS Safety Report 10313916 (Version 1)
Quarter: 2014Q3

REPORT INFORMATION
  Report Type: Spontaneous
  Country: US (occurrence: US)
  Receive Date: 20140718
  Receipt Date: 20140718
  Transmission Date: 20150326
  Serious: No
  Sender: FDA-Public Use
  Company Number: US-AMGEN-USASP2014053659

PATIENT
  Age: 47 Year
  Sex: Female
  Weight: 102.4 kg

DRUGS (7)
  1. JANUVIA [Concomitant]
     Active Substance: SITAGLIPTIN PHOSPHATE
     Dosage: 100 MG, UNK
  2. ASPIRIN LOW [Concomitant]
     Dosage: 81 MG, UNK
  3. ENBREL [Suspect]
     Active Substance: ETANERCEPT
     Indication: PSORIATIC ARTHROPATHY
  4. VICTOZA [Concomitant]
     Active Substance: LIRAGLUTIDE
     Dosage: 18 MG / 3 ML, UNK
  5. ENBREL [Suspect]
     Active Substance: ETANERCEPT
     Indication: PSORIASIS
     Dosage: 50 MG, QWK
     Route: 058
  6. LIPITOR [Concomitant]
     Active Substance: ATORVASTATIN CALCIUM
     Dosage: 10 MG, UNK
  7. GLUCOVANCE [Concomitant]
     Active Substance: GLYBURIDE\METFORMIN HYDROCHLORIDE
     Dosage: 2.5 - 500

REACTIONS (4)
  - Haemoglobin increased [Unknown]
  - Sunburn [Unknown]
  - Limb discomfort [Unknown]
  - Weight increased [Unknown]
